FAERS Safety Report 11585127 (Version 1)
Quarter: 2015Q4

REPORT INFORMATION
  Report Type: Spontaneous
  Country: US (occurrence: US)
  Receive Date: 20151001
  Receipt Date: 20151001
  Transmission Date: 20160304
  Serious: No
  Sender: FDA-Public Use
  Company Number: US-GLAXOSMITHKLINE-US2015139026

PATIENT
  Age: 28 Year
  Sex: Male

DRUGS (1)
  1. FLONASE [Suspect]
     Active Substance: FLUTICASONE PROPIONATE
     Indication: HYPERSENSITIVITY
     Dosage: UNK
     Dates: start: 20150929, end: 20150929

REACTIONS (4)
  - Headache [Not Recovered/Not Resolved]
  - Eye pain [Not Recovered/Not Resolved]
  - Ocular discomfort [Not Recovered/Not Resolved]
  - Head discomfort [Not Recovered/Not Resolved]

NARRATIVE: CASE EVENT DATE: 20150929
